FAERS Safety Report 4597184-1 (Version None)
Quarter: 2005Q1

REPORT INFORMATION
  Report Type: 
  Country: None (occurrence: None)
  Receive Date: 20050301
  Receipt Date: 20050215
  Transmission Date: 20050727
  Serious: Yes (Death, Hospitalization)
  Sender: FDA-Public Use
  Company Number: HQWYE332810NOV04

PATIENT
  Age: 77 Year
  Sex: Female

DRUGS (11)
  1. RHEUMATREX [Suspect]
     Indication: RHEUMATOID ARTHRITIS
     Dosage: 6 MG PER WEEK; ORAL
     Route: 048
     Dates: start: 20041006, end: 20041104
  2. KEPHTON-TWO (MENATETRENONE, ) [Suspect]
     Dosage: ORAL
     Route: 048
     Dates: end: 20041104
  3. LANDEL (EFONIDIPINE HYDROCHLORIDE, ) [Suspect]
     Dosage: ORAL
     Route: 048
     Dates: end: 20041104
  4. MAGNESIUM OXIDE (MAGNESIUM OXIDE, ) [Suspect]
     Dosage: ORAL
     Route: 048
  5. MOVER (ACTARIT, ) [Suspect]
     Indication: RHEUMATOID ARTHRITIS
     Dosage: ORAL
     Route: 048
     Dates: end: 20041104
  6. OSTELUC (ETODOLAC, CAPSULE) [Suspect]
     Dosage: ORAL
     Route: 048
     Dates: end: 20041104
  7. PREDNISOLONE [Suspect]
     Indication: RHEUMATOID ARTHRITIS
     Dosage: ORAL
     Route: 048
     Dates: end: 20041104
  8. RIMATIL (BUCILLAMINE, ) [Suspect]
     Indication: RHEUMATOID ARTHRITIS
     Dosage: ORAL
     Route: 048
     Dates: end: 20041104
  9. TIEKAPTO (CIMETIDINE, ) [Suspect]
     Dosage: ORAL
     Route: 048
     Dates: end: 20041104
  10. URINORM (BENZBROMARONE, ) [Suspect]
     Dosage: ORAL
     Route: 048
  11. ZYRTEC [Suspect]
     Dosage: ORAL
     Route: 048
     Dates: end: 20041104

REACTIONS (7)
  - ABASIA [None]
  - BLOOD ALKALINE PHOSPHATASE INCREASED [None]
  - FALL [None]
  - PANCYTOPENIA [None]
  - PYREXIA [None]
  - SEPSIS [None]
  - STOMATITIS [None]
